FAERS Safety Report 8615083 (Version 2)
Quarter: 2012Q4

REPORT INFORMATION
  Report Type: Report from Study
  Country: US (occurrence: US)
  Receive Date: 20120614
  Receipt Date: 20121101
  Transmission Date: 20130627
  Serious: Yes (Hospitalization)
  Sender: FDA-Public Use
  Company Number: US-CELGENEUS-163-21880-12060770

PATIENT
  Age: 71 Year
  Sex: Male
  Weight: 98.06 kg

DRUGS (1)
  1. REVLIMID [Suspect]
     Indication: MULTIPLE MYELOMA
     Dosage: 25 Milligram
     Route: 048
     Dates: start: 20110728, end: 20111218

REACTIONS (5)
  - Syncope [Unknown]
  - Arrhythmia [Unknown]
  - Anaemia [Unknown]
  - Hypotension [Unknown]
  - Pulmonary embolism [Unknown]
